APPROVED DRUG PRODUCT: CHLORHEXIDINE GLUCONATE
Active Ingredient: CHLORHEXIDINE GLUCONATE
Strength: 0.12%
Dosage Form/Route: SOLUTION;DENTAL
Application: A075561 | Product #001 | TE Code: AT
Applicant: BAJAJ MEDICAL
Approved: Nov 14, 2000 | RLD: No | RS: No | Type: RX